FAERS Safety Report 9605749 (Version 2)
Quarter: 2013Q4

REPORT INFORMATION
  Report Type: Spontaneous
  Country: US (occurrence: US)
  Receive Date: 20131008
  Receipt Date: 20131008
  Transmission Date: 20140711
  Serious: No
  Sender: FDA-Public Use
  Company Number: US-AMGEN-USASP2013023989

PATIENT
  Age: 42 Year
  Sex: Female
  Weight: 62.13 kg

DRUGS (9)
  1. ENBREL [Suspect]
     Indication: RHEUMATOID ARTHRITIS
     Dosage: 50 MG, QWK
     Route: 058
     Dates: start: 20040912
  2. AMITRIPTYLINE [Concomitant]
     Dosage: UNK
  3. PAXIL                              /00830802/ [Concomitant]
     Dosage: UNK
  4. ROBAXIN [Concomitant]
     Dosage: UNK
  5. RESTORIL                           /00393701/ [Concomitant]
     Dosage: UNK
  6. FLONASE                            /00972202/ [Concomitant]
     Dosage: UNK
  7. PLAQUENIL                          /00072602/ [Concomitant]
     Dosage: UNK
  8. SIMVASTATIN [Concomitant]
     Dosage: UNK
  9. FENOFIBRATE [Concomitant]
     Dosage: UNK

REACTIONS (2)
  - Headache [Not Recovered/Not Resolved]
  - Bronchitis [Recovered/Resolved]
